FAERS Safety Report 18113381 (Version 1)
Quarter: 2020Q3

REPORT INFORMATION
  Report Type: Spontaneous
  Country: US (occurrence: US)
  Receive Date: 20200805
  Receipt Date: 20200805
  Transmission Date: 20201103
  Serious: No
  Sender: FDA-Public Use
  Company Number: None

PATIENT
  Age: 76 Year
  Sex: Male
  Weight: 65 kg

DRUGS (1)
  1. REMDESIVIR (EUA) (REMDESIVIR (EUA)) [Suspect]
     Active Substance: REMDESIVIR
     Indication: COVID-19
     Route: 042
     Dates: start: 20200520, end: 20200528

REACTIONS (15)
  - Blood glucose abnormal [None]
  - Blood alkaline phosphatase increased [None]
  - Eosinophil count abnormal [None]
  - Blood potassium abnormal [None]
  - Blood chloride abnormal [None]
  - Blood urea abnormal [None]
  - Blood sodium abnormal [None]
  - White blood cell disorder [None]
  - Mean cell volume abnormal [None]
  - Platelet disorder [None]
  - Bilirubin conjugated increased [None]
  - Haemoglobin abnormal [None]
  - Blood creatine abnormal [None]
  - Aspartate aminotransferase increased [None]
  - Renal disorder [None]

NARRATIVE: CASE EVENT DATE: 20200528
